FAERS Safety Report 7404169-6 (Version None)
Quarter: 2011Q2

REPORT INFORMATION
  Report Type: 
  Country: None (occurrence: None)
  Receive Date: 20110408
  Receipt Date: 20110303
  Transmission Date: 20111010
  Serious: Yes (Hospitalization, Other)
  Sender: FDA-Public Use
  Company Number: US-BAYER-2010-008983

PATIENT
  Sex: Female
  Weight: 72.562 kg

DRUGS (14)
  1. YAZ [Suspect]
     Indication: PREMENSTRUAL SYNDROME
  2. YASMIN [Suspect]
     Indication: POLYCYSTIC OVARIES
  3. CEPHALEXIN [Concomitant]
     Dosage: 500 MG, UNK
  4. HYDROCODONE BITARTRATE AND ACETAMINOPHEN [Concomitant]
  5. YAZ [Suspect]
     Indication: ACNE
     Dosage: UNK UNK, QD
     Dates: start: 20061229
  6. YAZ [Suspect]
     Indication: MENSTRUAL DISORDER
  7. YASMIN [Suspect]
     Indication: PREMENSTRUAL SYNDROME
  8. OCELLA [Suspect]
     Indication: ACNE
     Dosage: UNK UNK, QD
  9. OCELLA [Suspect]
     Indication: PREMENSTRUAL SYNDROME
  10. YAZ [Suspect]
     Indication: POLYCYSTIC OVARIES
  11. IBUPROFEN (ADVIL) [Concomitant]
  12. YASMIN [Suspect]
     Indication: ACNE
     Dosage: UNK UNK, QD
  13. YASMIN [Suspect]
     Indication: MENSTRUAL DISORDER
  14. NITROFURANT MACRO [Concomitant]
     Dosage: UNK

REACTIONS (7)
  - COLITIS [None]
  - BILIARY DYSKINESIA [None]
  - INTESTINAL OBSTRUCTION [None]
  - HEPATIC FUNCTION ABNORMAL [None]
  - GALLBLADDER DISORDER [None]
  - INJURY [None]
  - PAIN [None]
